FAERS Safety Report 7980889-X (Version None)
Quarter: 2011Q4

REPORT INFORMATION
  Report Type: 
  Country: None (occurrence: None)
  Receive Date: 20111214
  Receipt Date: 20111201
  Transmission Date: 20120403
  Serious: Yes (Other)
  Sender: FDA-Public Use
  Company Number: US-MYLANLABS-2011S1025148

PATIENT
  Age: 20 Year
  Sex: Female

DRUGS (4)
  1. MONTELUKAST SODIUM [Concomitant]
     Route: 065
  2. ALBUTEROL SULFATE AUTOHALER [Suspect]
     Indication: ASTHMA
     Route: 065
  3. ALBUTEROL SULFATE AUTOHALER [Suspect]
     Dosage: FIVE NEBULISATIONS (2.5MG)
     Route: 055
  4. FLUTICASONE PROPIONATE W/SALMETEROL [Concomitant]
     Dosage: 250/50
     Route: 065

REACTIONS (1)
  - LACTIC ACIDOSIS [None]
